FAERS Safety Report 5170767-6 (Version None)
Quarter: 2006Q4

REPORT INFORMATION
  Report Type: 
  Country: None (occurrence: None)
  Receive Date: 20060919
  Receipt Date: 20060606
  Transmission Date: 20070319
  Serious: No
  Sender: FDA-Public Use
  Company Number: BDI-008317

PATIENT
  Age: 49 Year
  Sex: Female
  Weight: 81.82 kg

DRUGS (1)
  1. MULTIHANCE [Suspect]
     Indication: NUCLEAR MAGNETIC RESONANCE IMAGING
     Dosage: 15 ML ONCE IV
     Route: 042
     Dates: start: 20060522, end: 20060522

REACTIONS (1)
  - NAUSEA [None]
